FAERS Safety Report 18393503 (Version 2)
Quarter: 2020Q4

REPORT INFORMATION
  Report Type: Report from Study
  Country: None (occurrence: US)
  Receive Date: 20201016
  Receipt Date: 20201123
  Transmission Date: 20210114
  Serious: Yes (Other)
  Sender: FDA-Public Use
  Company Number: US-BIOVITRUM-2020US3892

PATIENT
  Age: 40 Year
  Sex: Female

DRUGS (9)
  1. PROBIOTIC [Concomitant]
     Active Substance: PROBIOTICS NOS
  2. XANAX [Concomitant]
     Active Substance: ALPRAZOLAM
     Dosage: AS NEEDED
  3. VITAMIN D [Concomitant]
     Active Substance: VITAMIN D NOS
  4. CONCERTA [Concomitant]
     Active Substance: METHYLPHENIDATE HYDROCHLORIDE
  5. PRISTIQ EXTENDED-RELEASE [Concomitant]
     Active Substance: DESVENLAFAXINE SUCCINATE
  6. MELATONIN [Concomitant]
     Active Substance: MELATONIN
  7. KINERET [Suspect]
     Active Substance: ANAKINRA
     Indication: STILL^S DISEASE
     Route: 058
     Dates: start: 20200716, end: 20201024
  8. VICTOZA [Concomitant]
     Active Substance: LIRAGLUTIDE
  9. LOSARTAN. [Concomitant]
     Active Substance: LOSARTAN

REACTIONS (12)
  - Contusion [Unknown]
  - Injection site erythema [Unknown]
  - Injection site reaction [Unknown]
  - Off label use [Unknown]
  - Weight increased [Unknown]
  - Injection site pruritus [Unknown]
  - Injection site bruising [Unknown]
  - Neutropenia [Unknown]
  - Pyrexia [Unknown]
  - White blood cell count decreased [Recovered/Resolved]
  - Injection site pain [Unknown]
  - Injection site haemorrhage [Unknown]

NARRATIVE: CASE EVENT DATE: 20200716
